FAERS Safety Report 7417241-1 (Version None)
Quarter: 2011Q2

REPORT INFORMATION
  Report Type: 
  Country: None (occurrence: None)
  Receive Date: 20110415
  Receipt Date: 20101015
  Transmission Date: 20111010
  Serious: Yes (Other)
  Sender: FDA-Public Use
  Company Number: US-BAYER-201028588NA

PATIENT
  Age: 20 Year
  Sex: Female
  Weight: 77 kg

DRUGS (9)
  1. OCELLA [Suspect]
     Dosage: UNK
  2. TAMIFLU [Concomitant]
     Dosage: 75 MG, UNK
     Route: 048
     Dates: start: 20090301
  3. CIPROFLOXACIN [Concomitant]
     Indication: EAR INFECTION
     Dosage: 0.3 %, UNK
  4. YASMIN [Suspect]
     Route: 048
     Dates: start: 20070101, end: 20090101
  5. AMOXICILLIN [Concomitant]
     Dosage: 875 MG, BID
     Route: 048
  6. YAZ [Suspect]
     Dosage: UNK UNK, UNK
     Route: 048
     Dates: start: 20060927, end: 20061101
  7. ACETAMINOPHEN [Concomitant]
     Indication: PAIN
     Dosage: 300 MG, PRN
     Route: 048
     Dates: start: 20090301
  8. CODEINE [Concomitant]
     Indication: PAIN
     Dosage: 30 MG, PRN
     Route: 048
     Dates: start: 20090301
  9. MIRENA [Concomitant]
     Indication: CONTRACEPTION
     Dosage: UNK
     Route: 015
     Dates: start: 20090323

REACTIONS (5)
  - JAUNDICE CHOLESTATIC [None]
  - CHOLELITHIASIS [None]
  - ABDOMINAL PAIN UPPER [None]
  - BILE DUCT STONE [None]
  - CHOLECYSTITIS CHRONIC [None]
